FAERS Safety Report 8574012-0 (Version None)
Quarter: 2012Q3

REPORT INFORMATION
  Report Type: 
  Country: None (occurrence: None)
  Receive Date: 20120806
  Receipt Date: 20120724
  Transmission Date: 20120928
  Serious: Yes (Other)
  Sender: FDA-Public Use
  Company Number: US-ELI_LILLY_AND_COMPANY-US201207007753

PATIENT
  Sex: Female

DRUGS (3)
  1. CYMBALTA [Suspect]
     Indication: DEPRESSION
     Dosage: 60MG, DAILY
     Dates: start: 20060101
  2. SYNTHROID [Concomitant]
  3. ESTRADIOL [Concomitant]

REACTIONS (7)
  - SKIN EXFOLIATION [None]
  - CYST [None]
  - URTICARIA [None]
  - PAIN [None]
  - SLEEP DISORDER [None]
  - BLISTER [None]
  - INTENTIONAL DRUG MISUSE [None]
